FAERS Safety Report 8905277 (Version 1)
Quarter: 2012Q4

REPORT INFORMATION
  Report Type: 
  Country: CA (occurrence: CA)
  Receive Date: 20121111
  Receipt Date: 20121111
  Transmission Date: 20130627
  Serious: Yes (Other)
  Sender: FDA-Public Use
  Company Number: PHHO2005CA08071

PATIENT
  Sex: Female

DRUGS (2)
  1. SANDOSTATIN LAR (PATIENT BASIS) [Suspect]
     Indication: CARCINOID TUMOUR
     Dosage: 60 mg, every 2 weeks
     Dates: start: 20030401
  2. SANDOSTATIN LAR (PATIENT BASIS) [Suspect]
     Dosage: 60 mg, q 2 weeks

REACTIONS (5)
  - Diarrhoea [Unknown]
  - Blood pressure decreased [Unknown]
  - Palpitations [Unknown]
  - Flushing [Unknown]
  - Tachycardia [Unknown]
